FAERS Safety Report 18020077 (Version 1)
Quarter: 2020Q3

REPORT INFORMATION
  Report Type: Report from Study
  Country: US (occurrence: US)
  Receive Date: 20200714
  Receipt Date: 20200714
  Transmission Date: 20201103
  Serious: Yes (Other)
  Sender: FDA-Public Use
  Company Number: US-BEH-2020119172

PATIENT
  Age: 66 Year
  Sex: Female

DRUGS (1)
  1. HAEGARDA [Suspect]
     Active Substance: HUMAN C1-ESTERASE INHIBITOR
     Route: 065

REACTIONS (12)
  - Arthralgia [Unknown]
  - Abscess oral [Unknown]
  - Abdominal discomfort [Unknown]
  - Diarrhoea [Unknown]
  - Peripheral swelling [Unknown]
  - Influenza like illness [Unknown]
  - Cough [Unknown]
  - Gait disturbance [Unknown]
  - Insomnia [Unknown]
  - Dental caries [Unknown]
  - Sneezing [Unknown]
  - Pruritus [Unknown]
